FAERS Safety Report 6518166-6 (Version None)
Quarter: 2009Q4

REPORT INFORMATION
  Report Type: 
  Country: None (occurrence: None)
  Receive Date: 20091223
  Receipt Date: 20091223
  Transmission Date: 20100525
  Serious: Yes (Life-Threatening)
  Sender: FDA-Public Use
  Company Number: None

PATIENT
  Age: 40 Year
  Sex: Male
  Weight: 117.9352 kg

DRUGS (3)
  1. GEODON [Suspect]
     Indication: BIPOLAR DISORDER
     Dosage: 20MG 1 AT BEDTIME PO
     Route: 048
     Dates: start: 20091015, end: 20091215
  2. GEODON [Suspect]
     Indication: PSYCHOTIC DISORDER
     Dosage: 20MG 1 AT BEDTIME PO
     Route: 048
     Dates: start: 20091015, end: 20091215
  3. GEODON [Suspect]
     Dosage: 40MG 1 AT BEDTIME PO
     Route: 048
     Dates: start: 20091216, end: 20091216

REACTIONS (6)
  - COGNITIVE DISORDER [None]
  - CONFUSIONAL STATE [None]
  - CONVULSION [None]
  - DYSPHEMIA [None]
  - DYSPNOEA [None]
  - PARALYSIS [None]
